FAERS Safety Report 16974707 (Version 1)
Quarter: 2019Q4

REPORT INFORMATION
  Report Type: Other
  Country: FR (occurrence: FR)
  Receive Date: 20191030
  Receipt Date: 20191030
  Transmission Date: 20200122
  Serious: Yes (Other)
  Sender: FDA-Public Use
  Company Number: FR-CELLTRION INC.-2019FR025844

PATIENT

DRUGS (2)
  1. APRANAX /00256201/ [Suspect]
     Active Substance: NAPROXEN
     Dosage: UNK
     Route: 048
     Dates: start: 20170711
  2. INFLIXIMAB (UNKNOWN) [Suspect]
     Active Substance: INFLIXIMAB
     Indication: ANKYLOSING SPONDYLITIS
     Dosage: 300 MG, CYCLIC
     Dates: start: 20170124, end: 20170711

REACTIONS (2)
  - Hepatocellular injury [Recovered/Resolved]
  - Underdose [Unknown]

NARRATIVE: CASE EVENT DATE: 20170711
